FAERS Safety Report 11280079 (Version 5)
Quarter: 2017Q1

REPORT INFORMATION
  Report Type: Spontaneous
  Country: US (occurrence: US)
  Receive Date: 20150717
  Receipt Date: 20170119
  Transmission Date: 20170428
  Serious: Yes (Hospitalization, Congenital Anomaly, Other)
  Sender: FDA-Public Use
  Company Number: US-APOTEX-2015AP008921

PATIENT
  Sex: Female

DRUGS (5)
  1. PAXIL [Suspect]
     Active Substance: PAROXETINE HYDROCHLORIDE
     Dosage: UNK
     Route: 064
     Dates: start: 20010809, end: 20050314
  2. PAXIL CR [Suspect]
     Active Substance: PAROXETINE HYDROCHLORIDE
     Indication: ANXIETY
     Dosage: 25 MG, QD
     Route: 064
     Dates: start: 20050207, end: 2006
  3. PAROXETINE HYDROCHLORIDE. [Suspect]
     Active Substance: PAROXETINE HYDROCHLORIDE
     Indication: PRODUCT USED FOR UNKNOWN INDICATION
     Dosage: 30 MG, DAILY
     Route: 064
     Dates: start: 20050316, end: 20061026
  4. PAXIL [Suspect]
     Active Substance: PAROXETINE HYDROCHLORIDE
     Dosage: 30 MG, QD
     Route: 064
     Dates: start: 20040928, end: 20050105
  5. PAXIL [Suspect]
     Active Substance: PAROXETINE HYDROCHLORIDE
     Indication: ANXIETY
     Dosage: 25 AND 30 MG INTERMITTENTLY
     Route: 064
     Dates: start: 20040928, end: 20050207

REACTIONS (29)
  - Congenital hypothyroidism [Unknown]
  - Tourette^s disorder [Unknown]
  - Atrial septal defect [Unknown]
  - Microcephaly [Unknown]
  - Congenital cytomegalovirus infection [Unknown]
  - Congenital hydrocephalus [Unknown]
  - Congenital hepatomegaly [Unknown]
  - Intellectual disability [Unknown]
  - Pneumonia cytomegaloviral [Unknown]
  - Gastrooesophageal reflux disease [Unknown]
  - Developmental delay [Unknown]
  - Spleen malformation [Unknown]
  - Cardiomegaly [Unknown]
  - Mitral valve incompetence [Unknown]
  - Foetal exposure during pregnancy [Unknown]
  - Patent ductus arteriosus [Unknown]
  - Cerebral palsy [Unknown]
  - Splenomegaly [Unknown]
  - Deafness [Unknown]
  - Laevocardia [Unknown]
  - Strabismus [Unknown]
  - Congenital central nervous system anomaly [Unknown]
  - Liver disorder [Unknown]
  - Premature baby [Unknown]
  - Tricuspid valve incompetence [Unknown]
  - Blindness congenital [Unknown]
  - Heart disease congenital [Unknown]
  - Hyperbilirubinaemia neonatal [Unknown]
  - Cytomegalovirus chorioretinitis [Unknown]

NARRATIVE: CASE EVENT DATE: 20050323
